FAERS Safety Report 10163064 (Version 1)
Quarter: 2014Q2

REPORT INFORMATION
  Report Type: Spontaneous
  Country: US (occurrence: US)
  Receive Date: 20140509
  Receipt Date: 20140509
  Transmission Date: 20141212
  Serious: Yes (Other)
  Sender: FDA-Public Use
  Company Number: US-BAYER-2014-067046

PATIENT
  Age: 31 Year
  Sex: Female

DRUGS (1)
  1. MIRENA [Suspect]
     Indication: CONTRACEPTION
     Dosage: 20 ?G/D, CONT
     Route: 015
     Dates: start: 201404

REACTIONS (7)
  - Vaginal odour [None]
  - Vaginal discharge [None]
  - Procedural pain [Recovered/Resolved]
  - Post procedural haemorrhage [None]
  - Vaginal haemorrhage [None]
  - Dyspareunia [None]
  - Abdominal pain lower [None]
